FAERS Safety Report 24287346 (Version 3)
Quarter: 2024Q3

REPORT INFORMATION
  Report Type: Report from Study
  Country: US (occurrence: US)
  Receive Date: 20240905
  Receipt Date: 20240909
  Transmission Date: 20241016
  Serious: Yes (Death)
  Sender: PFIZER
  Company Number: US-PFIZER INC-PV202400115681

PATIENT
  Age: 24 Year
  Sex: Female
  Weight: 110.93 kg

DRUGS (1)
  1. VOXELOTOR [Suspect]
     Active Substance: VOXELOTOR
     Dosage: 1500 MG, DAILY
     Dates: start: 20210601

REACTIONS (1)
  - Myocardial infarction [Fatal]
